FAERS Safety Report 18854766 (Version 1)
Quarter: 2021Q1

REPORT INFORMATION
  Report Type: Spontaneous
  Country: ES (occurrence: ES)
  Receive Date: 20210205
  Receipt Date: 20210205
  Transmission Date: 20210420
  Serious: Yes (Other)
  Sender: FDA-Public Use
  Company Number: ES-ALLERGAN-2105313US

PATIENT
  Sex: Male
  Weight: 109.5 kg

DRUGS (7)
  1. CEFTAZIDIME;AVIBACTAM ? BP [Suspect]
     Active Substance: AVIBACTAM SODIUM\CEFTAZIDIME
     Indication: PSEUDOMONAL BACTERAEMIA
     Dosage: 3 DF, 1X/DAY
     Route: 042
     Dates: start: 20201218, end: 20201221
  2. KETOLAR [Concomitant]
     Active Substance: KETAMINE HYDROCHLORIDE
     Indication: SEDATION
     Dosage: 3 G, 1X/DAY
     Route: 042
     Dates: start: 20201217, end: 20201218
  3. DEXMEDETOMIDINA EVER PHARMA [Concomitant]
     Indication: SEDATION
     Dosage: 3000 UG, 1X/DAY
     Route: 042
     Dates: start: 20201215, end: 20201224
  4. MIDAZOLAM B. BRAUN [Concomitant]
     Active Substance: MIDAZOLAM HYDROCHLORIDE
     Indication: SEDATION
     Dosage: 240 MG, 1X/DAY
     Route: 042
     Dates: start: 20201217, end: 20201219
  5. FLUMIL [ACETYLCYSTEINE] [Concomitant]
     Route: 055
  6. FENTANEST [FENTANYL CITRATE] [Concomitant]
     Indication: SEDATION
     Dosage: 4 MG, 1X/DAY
     Route: 042
     Dates: start: 20201215, end: 20210102
  7. AZACTAM [Suspect]
     Active Substance: AZTREONAM
     Indication: PSEUDOMONAL BACTERAEMIA
     Dosage: 6 G, 1X/DAY
     Route: 042
     Dates: start: 20201218, end: 20201221

REACTIONS (1)
  - Cholestasis [Recovered/Resolved]

NARRATIVE: CASE EVENT DATE: 20201221
